FAERS Safety Report 9151219 (Version 3)
Quarter: 2014Q1

REPORT INFORMATION
  Report Type: Spontaneous
  Country: GB (occurrence: None)
  Receive Date: 20130201
  Receipt Date: 20140123
  Transmission Date: 20141002
  Serious: Yes (Other)
  Sender: FDA-Public Use
  Company Number: VAL_01370_2013

PATIENT
  Sex: Female

DRUGS (5)
  1. METOPROLOL [Suspect]
     Indication: HYPERTENSION
     Route: 048
  2. DIAMORPHINE [Concomitant]
  3. CYCLIZINE [Concomitant]
  4. DEXAMETHASONE [Concomitant]
  5. TINZAPARIN [Concomitant]

REACTIONS (4)
  - Malignant neoplasm progression [None]
  - Neoplasm malignant [None]
  - General physical health deterioration [None]
  - Dysphagia [None]
